FAERS Safety Report 21229596 (Version 1)
Quarter: 2022Q3

REPORT INFORMATION
  Report Type: Spontaneous
  Country: US (occurrence: US)
  Receive Date: 20220818
  Receipt Date: 20220818
  Transmission Date: 20221027
  Serious: No
  Sender: FDA-Public Use
  Company Number: US-SUNOVION-2022SUN002441

PATIENT

DRUGS (9)
  1. LATUDA [Suspect]
     Active Substance: LURASIDONE HYDROCHLORIDE
     Indication: Schizophrenia
     Dosage: UNK
     Route: 048
  2. SEROQUEL [Suspect]
     Active Substance: QUETIAPINE FUMARATE
     Dosage: UNK
     Route: 065
  3. VRAYLAR [Suspect]
     Active Substance: CARIPRAZINE
     Dosage: UNK
     Route: 065
  4. RISPERDAL [Suspect]
     Active Substance: RISPERIDONE
     Dosage: UNK
     Route: 065
  5. GEODON [Suspect]
     Active Substance: ZIPRASIDONE HYDROCHLORIDE\ZIPRASIDONE MESYLATE
     Dosage: UNK
     Route: 065
  6. ZYPREXA [Suspect]
     Active Substance: OLANZAPINE
     Dosage: UNK
     Route: 065
  7. HALDOL [Suspect]
     Active Substance: HALOPERIDOL
     Dosage: UNK
     Route: 065
  8. DEPAKOTE [Suspect]
     Active Substance: DIVALPROEX SODIUM
     Dosage: UNK
     Route: 065
  9. LAMICTAL [Suspect]
     Active Substance: LAMOTRIGINE
     Dosage: UNK
     Route: 065

REACTIONS (6)
  - Psychotic disorder [Unknown]
  - Drug ineffective [Unknown]
  - Nausea [Unknown]
  - Insomnia [Unknown]
  - Depression [Unknown]
  - Anxiety [Unknown]
